FAERS Safety Report 18760758 (Version 1)
Quarter: 2021Q1

REPORT INFORMATION
  Report Type: Spontaneous
  Country: US (occurrence: US)
  Receive Date: 20210119
  Receipt Date: 20210119
  Transmission Date: 20210419
  Serious: No
  Sender: FDA-Public Use
  Company Number: US-PFIZER INC-2021034966

PATIENT
  Age: 53 Year
  Sex: Female

DRUGS (1)
  1. IBRANCE [Suspect]
     Active Substance: PALBOCICLIB
     Indication: BREAST CANCER FEMALE
     Dosage: 125 MG, CYCLIC (TAKE  1 TABLET BY MOUTH ONCE DAILY ON DAYS 1 TO 21,  FOLLOWED BY 7 DAYS OF REST)
     Route: 048
     Dates: start: 202012

REACTIONS (1)
  - Nausea [Unknown]
